FAERS Safety Report 19395840 (Version 2)
Quarter: 2021Q3

REPORT INFORMATION
  Report Type: Spontaneous
  Country: US (occurrence: US)
  Receive Date: 20210609
  Receipt Date: 20210802
  Transmission Date: 20211014
  Serious: No
  Sender: FDA-Public Use
  Company Number: US-SA-2021SA190071

PATIENT
  Age: 76 Year
  Sex: Female

DRUGS (1)
  1. AUBAGIO [Suspect]
     Active Substance: TERIFLUNOMIDE
     Indication: MULTIPLE SCLEROSIS
     Dosage: 14 MG, QD
     Route: 048
     Dates: start: 20200309

REACTIONS (6)
  - Diplopia [Unknown]
  - Hypersomnia [Not Recovered/Not Resolved]
  - Amnesia [Unknown]
  - Cerebral disorder [Not Recovered/Not Resolved]
  - Mobility decreased [Unknown]
  - Cognitive disorder [Not Recovered/Not Resolved]

NARRATIVE: CASE EVENT DATE: 20210603
